FAERS Safety Report 13287413 (Version 3)
Quarter: 2017Q1

REPORT INFORMATION
  Report Type: Report from Study
  Country: ZA (occurrence: ZA)
  Receive Date: 20170302
  Receipt Date: 20170323
  Transmission Date: 20170428
  Serious: Yes (Other)
  Sender: FDA-Public Use
  Company Number: ZA-EMD SERONO-8145198

PATIENT
  Age: 43 Year
  Sex: Female

DRUGS (2)
  1. REBIF [Suspect]
     Active Substance: INTERFERON BETA-1A
     Dosage: DOSE REDUCED TO 44 MCG WEEKLY
     Route: 058
     Dates: start: 2017
  2. REBIF [Suspect]
     Active Substance: INTERFERON BETA-1A
     Indication: MULTIPLE SCLEROSIS
     Route: 058
     Dates: start: 20090402

REACTIONS (2)
  - Intentional product misuse [Unknown]
  - Immunodeficiency [Unknown]

NARRATIVE: CASE EVENT DATE: 2017
